FAERS Safety Report 8906198 (Version 1)
Quarter: 2012Q4

REPORT INFORMATION
  Report Type: Spontaneous
  Country: US (occurrence: None)
  Receive Date: 20121112
  Receipt Date: 20121112
  Transmission Date: 20130627
  Serious: Yes (Life-Threatening)
  Sender: FDA-Public Use
  Company Number: None

PATIENT
  Age: 48 Year
  Sex: Female
  Weight: 56.7 kg

DRUGS (2)
  1. ALPRAZOLAM [Suspect]
     Indication: ANXIETY
     Dosage: 1 tablet 3x/day po
     Route: 048
     Dates: start: 20121015, end: 20121108
  2. AMITRIPTYLINE [Suspect]
     Indication: DEPRESSION
     Dosage: 1 tablet daily po
     Route: 048
     Dates: start: 20121025, end: 20121102

REACTIONS (9)
  - Depression [None]
  - Agitation [None]
  - Suicidal ideation [None]
  - Anxiety [None]
  - Aggression [None]
  - Irritability [None]
  - Product substitution issue [None]
  - Product quality issue [None]
  - Product substitution issue [None]
